FAERS Safety Report 6361240-8 (Version None)
Quarter: 2009Q3

REPORT INFORMATION
  Report Type: 
  Country: None (occurrence: None)
  Receive Date: 20090918
  Receipt Date: 20090909
  Transmission Date: 20100115
  Serious: Yes (Hospitalization, Other)
  Sender: FDA-Public Use
  Company Number: JP-JNJFOC-20090900217

PATIENT
  Age: 82 Year
  Sex: Female
  Weight: 46 kg

DRUGS (10)
  1. REMICADE [Suspect]
     Dosage: 2ND INFUSION
     Route: 042
     Dates: start: 20090615, end: 20090629
  2. REMICADE [Suspect]
     Indication: RHEUMATOID ARTHRITIS
     Dosage: 1ST INFUSION ON UNSPECIFIED DATE
     Route: 042
     Dates: start: 20090615, end: 20090629
  3. RHEUMATREX [Suspect]
     Indication: RHEUMATOID ARTHRITIS
     Route: 048
  4. PREDNISOLONE [Suspect]
     Indication: RHEUMATOID ARTHRITIS
  5. BONALON [Concomitant]
     Indication: OSTEOPOROSIS
     Route: 048
  6. FOLIAMIN [Concomitant]
     Route: 048
  7. OMEPRAL [Concomitant]
     Indication: GASTRIC ULCER
     Dosage: DOSE: 1 TABLET
     Route: 048
  8. URSO 250 [Concomitant]
     Dosage: DOSE: 1 TABLET 3 TIMES A DAY
     Route: 048
  9. MUCOSTA [Concomitant]
     Dosage: DOSE: 1 TABLET 3 TIMES A DAY
     Route: 048
  10. CARNACULIN [Concomitant]
     Dosage: DOSE: 1 TABLET 3 TIMES A DAY
     Route: 048

REACTIONS (3)
  - FUNGAL INFECTION [None]
  - INTERSTITIAL LUNG DISEASE [None]
  - PNEUMOCYSTIS JIROVECI PNEUMONIA [None]
